FAERS Safety Report 11429119 (Version 1)
Quarter: 2015Q3

REPORT INFORMATION
  Report Type: Spontaneous
  Country: US (occurrence: None)
  Receive Date: 20150827
  Receipt Date: 20150827
  Transmission Date: 20151125
  Serious: Yes (Life-Threatening, Hospitalization)
  Sender: FDA-Public Use
  Company Number: None

PATIENT
  Age: 55 Year
  Sex: Female
  Weight: 69.4 kg

DRUGS (9)
  1. VICKS NYQUIL [Suspect]
     Active Substance: ACETAMINOPHEN\DEXTROMETHORPHAN HYDROBROMIDE\DOXYLAMINE SUCCINATE
     Indication: SLEEP DISORDER THERAPY
     Dates: start: 20150822, end: 20150822
  2. ROZEREM [Concomitant]
     Active Substance: RAMELTEON
  3. SLEEP AID NOS [Suspect]
     Active Substance: DIPHENHYDRAMINE HYDROCHLORIDE OR DOXYLAMINE SUCCINATE
     Indication: SLEEP DISORDER THERAPY
     Dates: start: 20150822, end: 20150822
  4. FUROSEMIDE. [Concomitant]
     Active Substance: FUROSEMIDE
  5. ATKINS DIET SHAKE [Concomitant]
  6. SPIRONOLACTONE. [Concomitant]
     Active Substance: SPIRONOLACTONE
  7. OMEPRAZOLE. [Concomitant]
     Active Substance: OMEPRAZOLE
  8. ARBONNE DIGESTIVE [Concomitant]
  9. SERTRALINE [Concomitant]
     Active Substance: SERTRALINE HYDROCHLORIDE

REACTIONS (5)
  - Seizure [None]
  - Cardiac arrest [None]
  - Ammonia increased [None]
  - Hypoxia [None]
  - Hepatic encephalopathy [None]

NARRATIVE: CASE EVENT DATE: 20150822
